FAERS Safety Report 5969072-7 (Version None)
Quarter: 2008Q4

REPORT INFORMATION
  Report Type: 
  Country: None (occurrence: None)
  Receive Date: 20081126
  Receipt Date: 20081009
  Transmission Date: 20090506
  Serious: No
  Sender: FDA-Public Use
  Company Number: US-ABBOTT-08P-163-0460998-00

PATIENT
  Sex: Male

DRUGS (5)
  1. SIMCOR [Suspect]
     Indication: BLOOD CHOLESTEROL INCREASED
     Dosage: 1000/20 MG DAILY 500/20 MG TWICE A DAY AT BEDTIME
     Route: 048
     Dates: start: 20080601
  2. EZETIMIBE [Concomitant]
     Indication: BLOOD TRIGLYCERIDES INCREASED
     Route: 048
  3. ACETYLSALICYLIC ACID SRT [Concomitant]
     Indication: DRUG USE FOR UNKNOWN INDICATION
     Route: 048
  4. GLUCOSAMINE W/CHONDROITIN SULFATE [Concomitant]
     Indication: ARTHRALGIA
     Route: 048
  5. ESOMEPRAZOLE MAGNESIUM [Concomitant]
     Indication: GASTROOESOPHAGEAL REFLUX DISEASE
     Route: 048

REACTIONS (3)
  - FLUSHING [None]
  - PRURITUS [None]
  - SKIN BURNING SENSATION [None]
